FAERS Safety Report 22079543 (Version 1)
Quarter: 2023Q1

REPORT INFORMATION
  Report Type: Spontaneous
  Country: US (occurrence: US)
  Receive Date: 20230309
  Receipt Date: 20230309
  Transmission Date: 20230418
  Serious: No
  Sender: FDA-Public Use
  Company Number: US-PFIZER INC-202300094288

PATIENT
  Age: 87 Year
  Sex: Female
  Weight: 65.77 kg

DRUGS (2)
  1. PAXLOVID [Suspect]
     Active Substance: NIRMATRELVIR\RITONAVIR
     Indication: COVID-19 treatment
     Dosage: [PF-07321332 150MG]/ [RITONAVIR 100 MG]; 2X/DAY
     Route: 048
     Dates: start: 20230302
  2. ZITHROMAX [Concomitant]
     Active Substance: AZITHROMYCIN DIHYDRATE
     Indication: COVID-19 treatment
     Dosage: UNK
     Dates: start: 20230302

REACTIONS (9)
  - Cough [Unknown]
  - Secretion discharge [Unknown]
  - Salivary hypersecretion [Unknown]
  - Productive cough [Unknown]
  - Oropharyngeal pain [Unknown]
  - Night sweats [Unknown]
  - Nervousness [Unknown]
  - Feeling abnormal [Unknown]
  - Product dose omission issue [Unknown]

NARRATIVE: CASE EVENT DATE: 20230301
